FAERS Safety Report 5127580-5 (Version None)
Quarter: 2006Q4

REPORT INFORMATION
  Report Type: 
  Country: None (occurrence: None)
  Receive Date: 20061011
  Receipt Date: 20061002
  Transmission Date: 20070319
  Serious: Yes (Death)
  Sender: FDA-Public Use
  Company Number: E2020-00532-SPO-KR

PATIENT
  Age: 76 Year
  Sex: Female
  Weight: 55 kg

DRUGS (6)
  1. ARICEPT [Suspect]
     Indication: DEMENTIA ALZHEIMER'S TYPE
     Dosage: 5 MG, 1 IN 1 D, ORAL; 10MG, 1 IN 1 D, ORAL
     Route: 048
     Dates: start: 20060315, end: 20060420
  2. ARICEPT [Suspect]
     Indication: DEMENTIA ALZHEIMER'S TYPE
     Dosage: 5 MG, 1 IN 1 D, ORAL; 10MG, 1 IN 1 D, ORAL
     Route: 048
     Dates: start: 20060421, end: 20060619
  3. CIMETIDINE [Concomitant]
  4. METOCLOPRAMIDE [Concomitant]
  5. GLIMEPIRIDE [Concomitant]
  6. ACETYLCARNITINE [Concomitant]

REACTIONS (3)
  - MULTI-ORGAN FAILURE [None]
  - SEPSIS [None]
  - URINARY TRACT INFECTION [None]
